FAERS Safety Report 9345440 (Version 2)
Quarter: 2016Q3

REPORT INFORMATION
  Report Type: Spontaneous
  Country: US (occurrence: US)
  Receive Date: 20130613
  Receipt Date: 20160722
  Transmission Date: 20161109
  Serious: Yes (Other)
  Sender: FDA-Public Use
  Company Number: US-RANBAXY-2013US-70152

PATIENT
  Age: 58 Year
  Sex: Female

DRUGS (1)
  1. ACETAMINOPHEN. [Suspect]
     Active Substance: ACETAMINOPHEN
     Indication: PAIN
     Dosage: GREATER THAN 4 G, DAILY
     Route: 065

REACTIONS (6)
  - Pyroglutamate increased [Unknown]
  - Metabolic acidosis [Recovering/Resolving]
  - Gastroenteritis [Unknown]
  - Leukocytosis [Unknown]
  - Acute kidney injury [Unknown]
  - Intentional overdose [Recovering/Resolving]
